FAERS Safety Report 9222410 (Version 1)
Quarter: 2013Q2

REPORT INFORMATION
  Report Type: Spontaneous
  Country: US (occurrence: US)
  Receive Date: 20130410
  Receipt Date: 20130410
  Transmission Date: 20140414
  Serious: Yes (Other)
  Sender: FDA-Public Use
  Company Number: US-ELI_LILLY_AND_COMPANY-US201304000687

PATIENT
  Sex: Male

DRUGS (6)
  1. CYMBALTA [Suspect]
     Indication: DEPRESSION
     Dosage: 60 MG, QD
     Dates: start: 2005
  2. CYMBALTA [Suspect]
     Dosage: 120 MG, QD
     Dates: end: 2010
  3. CYMBALTA [Suspect]
     Dosage: 60 MG, QD
     Dates: start: 2010
  4. CYMBALTA [Suspect]
     Dosage: 120 MG, QD
  5. ATENOLOL [Concomitant]
     Dosage: UNK, UNKNOWN
  6. FLOMAX [Concomitant]
     Dosage: 0.4 MG, UNKNOWN

REACTIONS (12)
  - Suicidal ideation [Unknown]
  - Hand fracture [Unknown]
  - Upper limb fracture [Unknown]
  - Head discomfort [Unknown]
  - Eye movement disorder [Unknown]
  - Affect lability [Unknown]
  - Mental disorder [Unknown]
  - Joint injury [Unknown]
  - Drug dose omission [Unknown]
  - Musculoskeletal pain [Unknown]
  - Drug effect decreased [Recovered/Resolved]
  - Drug withdrawal syndrome [Unknown]
